FAERS Safety Report 5189817-6 (Version None)
Quarter: 2006Q4

REPORT INFORMATION
  Report Type: 
  Country: None (occurrence: None)
  Receive Date: 20061215
  Receipt Date: 20061207
  Transmission Date: 20070319
  Serious: Yes (Death, Hospitalization)
  Sender: FDA-Public Use
  Company Number: 2006150598

PATIENT
  Age: 74 Year
  Sex: Female

DRUGS (12)
  1. ATORVASTATIN CALCIUM [Suspect]
     Dosage: 1 IN 1 D, ORAL
     Route: 048
     Dates: end: 20050115
  2. PRAVASTATIN [Suspect]
     Dosage: 40 MG (40 MG, 1 IN 1 D), ORAL
     Route: 048
     Dates: start: 20050118, end: 20060926
  3. REPAGLINIDE [Suspect]
     Dosage: 2 MG (2 MG, 1 IN 1 D), ORAL
     Route: 048
     Dates: start: 20060215, end: 20060228
  4. FUROSEMIDE [Suspect]
     Dosage: 20 MG (20 MG, 1 IN 1 D), ORAL
     Route: 048
     Dates: start: 20060115, end: 20060929
  5. METFORMIN HCL [Suspect]
     Dosage: 3 IN 1 D, ORAL
     Route: 048
     Dates: end: 20060928
  6. PAROXETINE [Suspect]
     Dosage: 40 MG (20 MG, 1 IN 1 D), ORAL
     Route: 048
     Dates: end: 20060928
  7. HYDROXYZINE [Concomitant]
  8. LEVOTHYROXINE SODIUM [Concomitant]
  9. OXYBUTYNIN (OXYBUTUYNIN) [Concomitant]
  10. CAPTOPRIL W/HYDROCHLOROTHIAZIDE (CAPTOPRIL, HYDROCHLOROTHIAZIDE) [Concomitant]
  11. INSULIN [Concomitant]
  12. BENSERAZIDE HYDROCHLORIDE (BENSERAZIDE HYDROCHLORIDE) [Concomitant]

REACTIONS (10)
  - ACTIVITIES OF DAILY LIVING IMPAIRED [None]
  - ASTHENIA [None]
  - BIOPSY MUSCLE ABNORMAL [None]
  - BLOOD CREATINE PHOSPHOKINASE INCREASED [None]
  - DYSSTASIA [None]
  - GOITRE [None]
  - GRAND MAL CONVULSION [None]
  - HYPERTHERMIA [None]
  - INFECTION [None]
  - MYOPATHY [None]
